FAERS Safety Report 8624540-4 (Version None)
Quarter: 2012Q3

REPORT INFORMATION
  Report Type: 
  Country: None (occurrence: None)
  Receive Date: 20120827
  Receipt Date: 20120823
  Transmission Date: 20120928
  Serious: Yes (Other)
  Sender: FDA-Public Use
  Company Number: US-JNJFOC-20120811743

PATIENT
  Sex: Male
  Weight: 117.03 kg

DRUGS (1)
  1. NUCYNTA [Suspect]
     Indication: PAIN
     Dosage: EVERY 4 HOURS
     Route: 048
     Dates: start: 20120608

REACTIONS (7)
  - GOUT [None]
  - LIMB INJURY [None]
  - HYPERTENSION [None]
  - MEMORY IMPAIRMENT [None]
  - BACK PAIN [None]
  - HYPOAESTHESIA [None]
  - BRUXISM [None]
